FAERS Safety Report 7589368-5 (Version None)
Quarter: 2011Q2

REPORT INFORMATION
  Report Type: 
  Country: None (occurrence: None)
  Receive Date: 20110627
  Receipt Date: 20110617
  Transmission Date: 20111010
  Serious: Yes (Hospitalization, Other)
  Sender: FDA-Public Use
  Company Number: JPI-P-015511

PATIENT
  Age: 42 Year
  Sex: Female
  Weight: 77.5651 kg

DRUGS (8)
  1. LEVOTHYROXINE SODIUM [Concomitant]
  2. MODAFINIL [Concomitant]
  3. XYREM [Suspect]
     Indication: NARCOLEPSY
     Dosage: ORAL; (4 GM FIRST DOSE/4.5 GM SECOND DOSE), ORAL
     Route: 048
     Dates: start: 20090101
  4. VITAMIN B-12 [Concomitant]
  5. DIAZEPAM [Concomitant]
  6. INTRAVENOUS FLUIDS [Suspect]
     Indication: PROPHYLAXIS AGAINST DEHYDRATION
     Dosage: INTRAVENOUS
     Route: 042
     Dates: start: 20101201
  7. TRIMETHOBENZAMIDE HYDROCHLORIDE [Concomitant]
  8. MULTI-VITAMINS [Concomitant]

REACTIONS (5)
  - CONVULSION [None]
  - MALABSORPTION [None]
  - COLECTOMY [None]
  - MYOCARDIAL INFARCTION [None]
  - WEIGHT DECREASED [None]
